FAERS Safety Report 25009066 (Version 1)
Quarter: 2025Q1

REPORT INFORMATION
  Report Type: Report from Study
  Country: US (occurrence: US)
  Receive Date: 20250225
  Receipt Date: 20250225
  Transmission Date: 20250408
  Serious: Yes (Hospitalization)
  Sender: GILEAD
  Company Number: US-GILEAD-2025-0704695

PATIENT
  Age: 39 Year
  Sex: Female

DRUGS (38)
  1. AZTREONAM LYSINE [Suspect]
     Active Substance: AZTREONAM LYSINE
     Indication: Cystic fibrosis
     Dosage: 75MG, INHALE 75 MG VIA ALTERA NEBULIZER THREE TIMES DAILY FOR 28 DAYS ON, THEN 28 DAYS OFF
     Route: 055
     Dates: start: 20230220
  2. SODIUM CHLORIDE [Concomitant]
     Active Substance: SODIUM CHLORIDE
  3. CHOLECALCIFEROL [Concomitant]
     Active Substance: CHOLECALCIFEROL
  4. LEVETIRACETAM [Concomitant]
     Active Substance: LEVETIRACETAM
  5. GABAPENTIN [Concomitant]
     Active Substance: GABAPENTIN
  6. MUCINEX [Concomitant]
     Active Substance: GUAIFENESIN
  7. PANCREAZE [Concomitant]
     Active Substance: PANCRELIPASE AMYLASE\PANCRELIPASE LIPASE\PANCRELIPASE PROTEASE
  8. FLUTICASONE [Concomitant]
     Active Substance: FLUTICASONE
  9. OMEPRAZOLE [Concomitant]
     Active Substance: OMEPRAZOLE
  10. VELPHORO [Concomitant]
     Active Substance: SUCROFERRIC OXYHYDROXIDE
  11. HYDRALAZINE HYDROCHLORIDE [Concomitant]
     Active Substance: HYDRALAZINE HYDROCHLORIDE
  12. LOPRESSOR [Concomitant]
     Active Substance: METOPROLOL TARTRATE
  13. COLISTIMETHATE SODIUM [Concomitant]
     Active Substance: COLISTIMETHATE SODIUM
  14. MYCOPHENOLIC ACID [Concomitant]
     Active Substance: MYCOPHENOLIC ACID
  15. CALCIUM\VITAMIN D [Concomitant]
     Active Substance: CALCIUM\VITAMIN D
  16. FERROUS SULFATE [Concomitant]
     Active Substance: FERROUS SULFATE
  17. VITAMIN E [Concomitant]
     Active Substance: .ALPHA.-TOCOPHEROL
  18. PREDNISONE [Concomitant]
     Active Substance: PREDNISONE
  19. LIDOCAINE [Concomitant]
     Active Substance: LIDOCAINE
  20. HUMALOG [Concomitant]
     Active Substance: INSULIN LISPRO
  21. LORAZEPAM [Concomitant]
     Active Substance: LORAZEPAM
  22. LANTUS SOLOSTAR [Concomitant]
     Active Substance: INSULIN GLARGINE
  23. ONDANSETRON [Concomitant]
     Active Substance: ONDANSETRON
  24. ACYCLOVIR ALPHARMA [ACICLOVIR] [Concomitant]
  25. BACTRIM [Concomitant]
     Active Substance: SULFAMETHOXAZOLE\TRIMETHOPRIM
  26. VITAMIN C [Concomitant]
     Active Substance: ASCORBIC ACID
  27. CITALOPRAM [Concomitant]
     Active Substance: CITALOPRAM
  28. URSODIOL [Concomitant]
     Active Substance: URSODIOL
  29. ALBUTEROL SULFATE [Concomitant]
     Active Substance: ALBUTEROL SULFATE
  30. LIQUACEL [Concomitant]
  31. LEVOTHYROXINE [Concomitant]
     Active Substance: LEVOTHYROXINE
  32. NORTRIPTYLINE [Concomitant]
     Active Substance: NORTRIPTYLINE
  33. FIBER LAX [Concomitant]
     Active Substance: CALCIUM POLYCARBOPHIL
  34. DIPHENHYDRAMINE [Concomitant]
     Active Substance: DIPHENHYDRAMINE
  35. PROGRAF [Concomitant]
     Active Substance: TACROLIMUS
  36. SEROQUEL [Concomitant]
     Active Substance: QUETIAPINE FUMARATE
  37. NEPHROCAPS [ASCORBIC ACID;BIOTIN;CYANOCOBALAMIN;FOLIC ACID;NICOTINAMID [Concomitant]
  38. METOCLOPRAMIDE [Concomitant]
     Active Substance: METOCLOPRAMIDE

REACTIONS (1)
  - Infection [Unknown]
